FAERS Safety Report 6145570-0 (Version None)
Quarter: 2009Q2

REPORT INFORMATION
  Report Type: 
  Country: None (occurrence: None)
  Receive Date: 20090407
  Receipt Date: 20090402
  Transmission Date: 20091009
  Serious: Yes (Hospitalization)
  Sender: FDA-Public Use
  Company Number: US-RB-013457-09

PATIENT
  Age: 43 Year
  Sex: Female

DRUGS (3)
  1. SUBOXONE [Suspect]
     Route: 060
     Dates: start: 20080101
  2. SUBOXONE [Suspect]
     Route: 060
     Dates: start: 20080101
  3. BC POWDER [Suspect]
     Dosage: DOSE AND FREQUENCY UNKNOWN
     Route: 048
     Dates: start: 20080101, end: 20090319

REACTIONS (4)
  - ASTHENIA [None]
  - GASTRIC ULCER HAEMORRHAGE [None]
  - HAEMOGLOBIN DECREASED [None]
  - PALLOR [None]
